FAERS Safety Report 17302955 (Version 1)
Quarter: 2020Q1

REPORT INFORMATION
  Report Type: Spontaneous
  Country: US (occurrence: US)
  Receive Date: 20200122
  Receipt Date: 20200122
  Transmission Date: 20200409
  Serious: Yes (Other)
  Sender: FDA-Public Use
  Company Number: NVSC2020US015655

PATIENT
  Sex: Female

DRUGS (4)
  1. IMATINIB. [Suspect]
     Active Substance: IMATINIB MESYLATE
     Indication: CHRONIC MYELOID LEUKAEMIA
     Dosage: 400 MG, QD
     Route: 065
  2. IMATINIB. [Suspect]
     Active Substance: IMATINIB MESYLATE
     Dosage: 200 MG, QD
     Route: 065
  3. IMATINIB. [Suspect]
     Active Substance: IMATINIB MESYLATE
     Dosage: 300 MG, QD
     Route: 065
  4. BOSUTINIB [Suspect]
     Active Substance: BOSUTINIB
     Indication: CHRONIC MYELOID LEUKAEMIA
     Dosage: 400 MG, QD (100 MG TO 400)
     Route: 065
     Dates: start: 201905, end: 201910

REACTIONS (10)
  - Barrett^s oesophagus [Unknown]
  - Visual impairment [Unknown]
  - Arthralgia [Unknown]
  - Neck pain [Recovering/Resolving]
  - Nausea [Unknown]
  - Myalgia [Unknown]
  - Periorbital oedema [Unknown]
  - Vomiting [Unknown]
  - Fatigue [Recovering/Resolving]
  - Gastrooesophageal reflux disease [Unknown]
